FAERS Safety Report 5893313-8 (Version None)
Quarter: 2008Q3

REPORT INFORMATION
  Report Type: 
  Country: None (occurrence: None)
  Receive Date: 20080923
  Receipt Date: 20080916
  Transmission Date: 20090109
  Serious: Yes (Hospitalization)
  Sender: FDA-Public Use
  Company Number: B0537194A

PATIENT
  Age: 78 Year
  Sex: Female

DRUGS (4)
  1. SERETIDE [Suspect]
     Indication: CHRONIC OBSTRUCTIVE PULMONARY DISEASE
     Dosage: 2PUFF TWICE PER DAY
     Route: 055
     Dates: start: 20070101
  2. SALBUTAMOL SULPHATE [Suspect]
     Indication: CHRONIC OBSTRUCTIVE PULMONARY DISEASE
     Dosage: 100MCG AS REQUIRED
     Route: 055
  3. ENALAPRIL MALEATE [Suspect]
     Indication: BLOOD PRESSURE
  4. WARFARIN SODIUM [Suspect]
     Indication: PULMONARY EMBOLISM
     Dosage: 4.5MG UNKNOWN
     Route: 065
     Dates: start: 20080401

REACTIONS (3)
  - BREAST CANCER [None]
  - BREAST CANCER RECURRENT [None]
  - PULMONARY EMBOLISM [None]
